FAERS Safety Report 7638614-8 (Version None)
Quarter: 2011Q3

REPORT INFORMATION
  Report Type: 
  Country: None (occurrence: None)
  Receive Date: 20110726
  Receipt Date: 20110726
  Transmission Date: 20111222
  Serious: No
  Sender: FDA-Public Use
  Company Number: None

PATIENT
  Age: 68 Year
  Sex: Female
  Weight: 104.3273 kg

DRUGS (2)
  1. OMEPRAZOLE [Suspect]
     Indication: OESOPHAGEAL STENOSIS
     Dosage: PRILOSEC OTC 3 IN AM 3 IN PM BY MOUTH
     Route: 048
     Dates: start: 20110414
  2. ZANTAC [Suspect]
     Indication: BARRETT'S OESOPHAGUS
     Dosage: ZANTAC 150MG OVER THE COUNTER 2 IN AM 2 IN PM BY MOUTH
     Route: 048
     Dates: start: 20110414

REACTIONS (1)
  - DRUG INEFFECTIVE [None]
